FAERS Safety Report 8844324 (Version 1)
Quarter: 2012Q4

REPORT INFORMATION
  Report Type: 
  Country: US (occurrence: US)
  Receive Date: 20121017
  Receipt Date: 20121017
  Transmission Date: 20130627
  Serious: No
  Sender: FDA-Public Use
  Company Number: US-009507513-1210USA005491

PATIENT
  Age: 32 Year
  Sex: Female

DRUGS (2)
  1. SAPHRIS [Suspect]
     Indication: BIPOLAR DISORDER
     Dosage: 10 mg, UNK
     Route: 060
     Dates: start: 20121001, end: 20121005
  2. NORVASK [Concomitant]

REACTIONS (2)
  - Hypoaesthesia oral [Recovering/Resolving]
  - Dysgeusia [Recovering/Resolving]
